FAERS Safety Report 5133745-9 (Version None)
Quarter: 2006Q4

REPORT INFORMATION
  Report Type: 
  Country: None (occurrence: None)
  Receive Date: 20061018
  Receipt Date: 20060919
  Transmission Date: 20070319
  Serious: Yes (Hospitalization, Other)
  Sender: FDA-Public Use
  Company Number: 2006-08-0663

PATIENT
  Age: 68 Year
  Sex: Female
  Weight: 60.782 kg

DRUGS (17)
  1. TEMODAR [Suspect]
     Indication: GLIOBLASTOMA MULTIFORME
     Dosage: 125 MG; QD; PO
     Route: 048
     Dates: start: 20060620, end: 20060718
  2. RADIATION THERAPY [Concomitant]
  3. KEPPRA [Concomitant]
  4. DECADRON [Concomitant]
  5. GLUCOPHAGE [Concomitant]
  6. MIRALAX [Concomitant]
  7. DIFLUCAN [Concomitant]
  8. MAGIG MOUTH WASH [Concomitant]
  9. ZOFRAN [Concomitant]
  10. ACIPHEX [Concomitant]
  11. MAXZIDE [Concomitant]
  12. ATENOLOL [Concomitant]
  13. SYNTHROID [Concomitant]
  14. CENTRUM SILVER [Concomitant]
  15. BACTRIM DS [Concomitant]
  16. COMPAZINE [Concomitant]
  17. NEUPOGEN [Concomitant]

REACTIONS (4)
  - BONE NEOPLASM [None]
  - HYPERGLYCAEMIA [None]
  - ORAL CANDIDIASIS [None]
  - PANCYTOPENIA [None]
